FAERS Safety Report 21354740 (Version 1)
Quarter: 2022Q3

REPORT INFORMATION
  Report Type: Spontaneous
  Country: DE (occurrence: DE)
  Receive Date: 20220920
  Receipt Date: 20220920
  Transmission Date: 20221027
  Serious: Yes (Other)
  Sender: FDA-Public Use
  Company Number: DE-VIIV HEALTHCARE LIMITED-DE2022EME132882

PATIENT

DRUGS (2)
  1. VOCABRIA [Suspect]
     Active Substance: CABOTEGRAVIR SODIUM
     Indication: Hepatitis B
     Dosage: UNK
  2. RILPIVIRINE [Suspect]
     Active Substance: RILPIVIRINE
     Indication: Hepatitis B
     Dosage: UNK

REACTIONS (7)
  - Pathogen resistance [Unknown]
  - Virologic failure [Unknown]
  - Depression [Unknown]
  - Injection related reaction [Unknown]
  - Headache [Unknown]
  - Adverse event [Unknown]
  - Product use in unapproved indication [Unknown]
